FAERS Safety Report 8289648-4 (Version None)
Quarter: 2012Q2

REPORT INFORMATION
  Report Type: 
  Country: None (occurrence: None)
  Receive Date: 20120417
  Receipt Date: 20120411
  Transmission Date: 20120825
  Serious: Yes (Hospitalization)
  Sender: FDA-Public Use
  Company Number: DE-PFIZER INC-2012090948

PATIENT
  Age: 47 Year
  Sex: Female
  Weight: 54 kg

DRUGS (28)
  1. SOMATROPIN [Suspect]
     Dosage: 0.5 UNK, 1X/DAY
     Dates: start: 20081021, end: 20081230
  2. NORGESTIMATE AND ETHINYL ESTRADIOL [Concomitant]
     Dosage: 1 UNIT DAILY
     Dates: start: 19970301, end: 20100101
  3. TEGRETOL [Concomitant]
     Indication: EPILEPSY
     Dosage: 800 MG, DAILY
     Dates: start: 20100101
  4. OSPOLOT [Concomitant]
     Indication: CONVULSION
  5. SOMATROPIN [Suspect]
     Dosage: 1 UNK, 1X/DAY
     Dates: start: 19960327, end: 19961021
  6. ROCALTROL [Concomitant]
     Dosage: 0.5 UG, DAILY
     Dates: start: 20100101
  7. SOMATROPIN [Suspect]
     Dosage: 0.5 UNK, 1X/DAY
     Dates: start: 20010725, end: 20070709
  8. LEVOTHYROXINE [Concomitant]
     Indication: BLOOD THYROID STIMULATING HORMONE DECREASED
     Dosage: 125 UG, DAILY
     Dates: start: 19730101
  9. CALCIUM [Concomitant]
     Dosage: 1000 MG, DAILY
     Dates: start: 20110101
  10. SOMATROPIN [Suspect]
     Dosage: 0.3 UNK, 1X/DAY
     Dates: start: 20081231
  11. TEGRETOL-XR [Concomitant]
     Indication: EPILEPSY
     Dosage: 100 MG, DAILY
     Dates: start: 19970601
  12. SOMATROPIN [Suspect]
     Dosage: 0.7 UNK, 1X/DAY
     Dates: start: 19961022, end: 19990607
  13. SOMATROPIN [Suspect]
     Dosage: 0.3 UNK, 1X/DAY
     Dates: start: 20070710, end: 20081020
  14. PRIMOLUT-NOR [Concomitant]
     Indication: BLOOD LUTEINISING HORMONE DECREASED
     Dosage: 5 MG, DAILY
     Dates: start: 19960301, end: 20100101
  15. TEGRETOL-XR [Concomitant]
     Indication: CONVULSION
  16. FEMOSTON ^EURIMPHARM^ [Concomitant]
     Indication: BLOOD LUTEINISING HORMONE DECREASED
     Dosage: 2/10MG (1 TABLET) DAILY
  17. SOMATROPIN [Suspect]
     Dosage: 0.67 UNK, 1X/DAY
     Dates: start: 19990608, end: 20010724
  18. PRIMOLUT-NOR [Concomitant]
     Indication: BLOOD FOLLICLE STIMULATING HORMONE DECREASED
  19. TEGRETOL-XR [Concomitant]
  20. CORTISONE ACETATE [Concomitant]
     Indication: BLOOD CORTICOTROPHIN DECREASED
     Dosage: DAILY
     Dates: start: 20081021
  21. AMITRIPTYLINE [Concomitant]
     Dosage: 75 MG, DAILY
     Dates: start: 20100101
  22. OSPOLOT [Concomitant]
     Indication: EPILEPSY
     Dosage: 2.5 TABLETS DAILY
  23. HYDROCORTISONE [Concomitant]
     Indication: BLOOD CORTICOTROPHIN DECREASED
     Dosage: 12.5 MG, DAILY
     Dates: start: 20090101
  24. TEGRETOL [Concomitant]
  25. FEMOSTON ^EURIMPHARM^ [Concomitant]
     Indication: BLOOD FOLLICLE STIMULATING HORMONE DECREASED
  26. OSPOLOT [Concomitant]
  27. NOVOPROTECT ^DURACHEMIE^ [Concomitant]
     Dosage: 1 TABLET DAILY
     Dates: start: 20081021, end: 20100101
  28. TEGRETOL [Concomitant]
     Indication: CONVULSION

REACTIONS (1)
  - ACCIDENT [None]
